FAERS Safety Report 7295004-8 (Version None)
Quarter: 2011Q1

REPORT INFORMATION
  Report Type: 
  Country: None (occurrence: None)
  Receive Date: 20110207
  Receipt Date: 20110128
  Transmission Date: 20110831
  Serious: Yes (Other)
  Sender: FDA-Public Use
  Company Number: 026463

PATIENT
  Age: 53 Year
  Sex: Male

DRUGS (1)
  1. KEPPRA [Suspect]
     Dosage: (500 MG)

REACTIONS (1)
  - CEREBROVASCULAR ACCIDENT [None]
